FAERS Safety Report 6961482-4 (Version None)
Quarter: 2010Q3

REPORT INFORMATION
  Report Type: 
  Country: None (occurrence: None)
  Receive Date: 20100901
  Receipt Date: 20100824
  Transmission Date: 20110219
  Serious: Yes (Other)
  Sender: FDA-Public Use
  Company Number: PHHO2010BR09508

PATIENT
  Sex: Male
  Weight: 67.5 kg

DRUGS (2)
  1. AEB071 AEB+GELCAP [Suspect]
     Indication: RENAL TRANSPLANT
     Dosage: 300 MG, BID
     Route: 048
     Dates: start: 20091210
  2. CERTICAN [Suspect]
     Indication: RENAL TRANSPLANT
     Dosage: UNK
     Route: 048
     Dates: start: 20091210

REACTIONS (5)
  - DRUG INEFFECTIVE [None]
  - INFLAMMATION [None]
  - KIDNEY FIBROSIS [None]
  - RENAL ATROPHY [None]
  - RENAL IMPAIRMENT [None]
